FAERS Safety Report 24007666 (Version 6)
Quarter: 2024Q4

REPORT INFORMATION
  Report Type: Spontaneous
  Country: US (occurrence: US)
  Receive Date: 20240625
  Receipt Date: 20241010
  Transmission Date: 20250115
  Serious: No
  Sender: BIOGEN
  Company Number: US-BIOGEN-2023BI01220688

PATIENT
  Sex: Male

DRUGS (17)
  1. VUMERITY [Suspect]
     Active Substance: DIROXIMEL FUMARATE
     Indication: Multiple sclerosis
     Dosage: FOR THE FIRST 7 DAYS
     Route: 050
     Dates: start: 2023
  2. VUMERITY [Suspect]
     Active Substance: DIROXIMEL FUMARATE
     Dosage: TWO CAPSULES (462MG)  BY MOUTH TWICE DAILY,
     Route: 050
     Dates: start: 20230725
  3. VUMERITY [Suspect]
     Active Substance: DIROXIMEL FUMARATE
     Route: 050
     Dates: start: 20230908, end: 20240718
  4. CLINDAMYCIN HYDROCHLORIDE [Concomitant]
     Active Substance: CLINDAMYCIN HYDROCHLORIDE
     Route: 050
  5. LEXAPRO [Concomitant]
     Active Substance: ESCITALOPRAM OXALATE
     Route: 050
  6. AZELASTINE HYDROCHLORIDE [Concomitant]
     Active Substance: AZELASTINE HYDROCHLORIDE
     Route: 050
  7. LORATADINE [Concomitant]
     Active Substance: LORATADINE
     Route: 050
  8. MELATONIN [Concomitant]
     Active Substance: MELATONIN
     Route: 050
  9. HYDROXYZINE HYDROCHLORIDE [Concomitant]
     Active Substance: HYDROXYZINE HYDROCHLORIDE
     Route: 050
  10. FLUOXETINE HYDROCHLORIDE [Concomitant]
     Active Substance: FLUOXETINE HYDROCHLORIDE
     Route: 050
  11. VITAMIN D [Concomitant]
     Active Substance: VITAMIN D NOS
     Route: 050
  12. PROZAC [Concomitant]
     Active Substance: FLUOXETINE HYDROCHLORIDE
     Route: 050
  13. BUPROPION HYDROCHLORIDE [Concomitant]
     Active Substance: BUPROPION HYDROCHLORIDE
     Route: 050
  14. PROPRANOLOL HYDROCHLORIDE [Concomitant]
     Active Substance: PROPRANOLOL HYDROCHLORIDE
     Dosage: 20MG/5ML SOL
     Route: 050
  15. KETOROLAC TROMETHAMINE [Concomitant]
     Active Substance: KETOROLAC TROMETHAMINE
     Route: 050
  16. TYLENOL EXTRA STRENGTH [Concomitant]
     Active Substance: ACETAMINOPHEN
     Route: 050
  17. BENEFIBER [Concomitant]
     Active Substance: STARCH, WHEAT
     Route: 050

REACTIONS (25)
  - Multiple sclerosis [Not Recovered/Not Resolved]
  - Gait disturbance [Not Recovered/Not Resolved]
  - Motor dysfunction [Not Recovered/Not Resolved]
  - Multiple sclerosis relapse [Unknown]
  - Tremor [Unknown]
  - Balance disorder [Unknown]
  - Dysphagia [Unknown]
  - Hypophagia [Unknown]
  - Hypersomnia [Unknown]
  - Aphasia [Unknown]
  - Constipation [Unknown]
  - Muscle spasms [Unknown]
  - Muscle spasticity [Unknown]
  - Decreased appetite [Unknown]
  - Headache [Unknown]
  - Fatigue [Unknown]
  - Choking [Unknown]
  - Illness [Unknown]
  - General physical health deterioration [Unknown]
  - Fall [Recovered/Resolved]
  - Cataract [Unknown]
  - Weight decreased [Recovered/Resolved]
  - Hypersensitivity [Unknown]
  - Vomiting [Unknown]
  - Diarrhoea [Recovered/Resolved]

NARRATIVE: CASE EVENT DATE: 20230101
